FAERS Safety Report 5939721-8 (Version None)
Quarter: 2008Q4

REPORT INFORMATION
  Report Type: 
  Country: None (occurrence: None)
  Receive Date: 20081031
  Receipt Date: 20081031
  Transmission Date: 20090506
  Serious: No
  Sender: FDA-Public Use
  Company Number: None

PATIENT
  Sex: Female
  Weight: 74.3899 kg

DRUGS (2)
  1. SULFASALAZINE [Suspect]
     Indication: ARTHRITIS
     Dosage: TWO TABLETS BID PO
     Route: 048
     Dates: start: 20081009, end: 20081024
  2. PREDNISONE TAB [Concomitant]

REACTIONS (10)
  - ABDOMINAL DISCOMFORT [None]
  - ABDOMINAL PAIN UPPER [None]
  - ANOREXIA [None]
  - FLUID INTAKE REDUCED [None]
  - HEADACHE [None]
  - HYPOPHAGIA [None]
  - NAUSEA [None]
  - PAIN [None]
  - PAIN IN EXTREMITY [None]
  - VIRAL INFECTION [None]
